FAERS Safety Report 14628459 (Version 1)
Quarter: 2018Q1

REPORT INFORMATION
  Report Type: Report from Study
  Country: None (occurrence: RO)
  Receive Date: 20180312
  Receipt Date: 20180312
  Transmission Date: 20180509
  Serious: Yes (Other)
  Sender: FDA-Public Use
  Company Number: RO-ABBVIE-18K-135-2280844-00

PATIENT
  Age: 41 Year
  Sex: Male

DRUGS (3)
  1. VOLTAREN [Concomitant]
     Active Substance: DICLOFENAC SODIUM
     Indication: ANKYLOSING SPONDYLITIS
     Route: 048
     Dates: start: 2010
  2. HUMIRA [Suspect]
     Active Substance: ADALIMUMAB
     Indication: ANKYLOSING SPONDYLITIS
     Route: 058
     Dates: start: 20120415
  3. OMEPRAZOL [Concomitant]
     Active Substance: OMEPRAZOLE
     Indication: ANKYLOSING SPONDYLITIS
     Route: 048
     Dates: start: 2010

REACTIONS (3)
  - Post procedural haemorrhage [Recovered/Resolved]
  - Dental leakage [Recovered/Resolved]
  - Tooth abscess [Recovered/Resolved]

NARRATIVE: CASE EVENT DATE: 2016
